FAERS Safety Report 21430210 (Version 1)
Quarter: 2022Q4

REPORT INFORMATION
  Report Type: Spontaneous
  Country: DE (occurrence: DE)
  Receive Date: 20221009
  Receipt Date: 20221009
  Transmission Date: 20230113
  Serious: Yes (Hospitalization)
  Sender: FDA-Public Use
  Company Number: DE-ADRED-08444-01

PATIENT
  Age: 80 Year
  Sex: Female
  Weight: 65 kg

DRUGS (15)
  1. ALLOPURINOL [Suspect]
     Active Substance: ALLOPURINOL
     Indication: Product used for unknown indication
     Dosage: .5 DOSAGE FORMS DAILY; 300 MG, 0.5-0-0-0
  2. CANDESARTAN [Suspect]
     Active Substance: CANDESARTAN
     Indication: Product used for unknown indication
     Dosage: .5 DOSAGE FORMS DAILY; 32 MG, 0-0-0.5-0
  3. TORSEMIDE [Suspect]
     Active Substance: TORSEMIDE
     Indication: Product used for unknown indication
     Dosage: 20 MG, 2-1-0-0
  4. ASPIRIN [Suspect]
     Active Substance: ASPIRIN
     Indication: Product used for unknown indication
     Dosage: 100 MILLIGRAM DAILY; 100 MG, 1-0-0-0,  ACETYLSALICYLSAURE
  5. DALTEPARIN [Suspect]
     Active Substance: DALTEPARIN
     Indication: Product used for unknown indication
     Dosage: 2 DOSAGE FORMS DAILY; 5000 IU, 1-0-1-0
  6. CHLORTHALIDONE [Suspect]
     Active Substance: CHLORTHALIDONE
     Indication: Product used for unknown indication
     Dosage: .5 DOSAGE FORMS DAILY; 25 MG, 0.5-0-0-0
  7. iron(II) [Concomitant]
     Indication: Product used for unknown indication
     Dosage: 50 MILLIGRAM DAILY; 50 MG, 1-0-0-0,  EISEN(II)
  8. BISOPROLOL [Concomitant]
     Active Substance: BISOPROLOL
     Indication: Product used for unknown indication
     Dosage: 5 MILLIGRAM DAILY; 5 MG, 0-0-1-0
  9. INSULIN HUMAN [Concomitant]
     Active Substance: INSULIN HUMAN
     Indication: Product used for unknown indication
     Dosage: 1 IU, AS NEEDED, PRE-FILLED SYRINGES
  10. INSULIN LISPRO [Concomitant]
     Active Substance: INSULIN LISPRO
     Indication: Product used for unknown indication
     Dosage: 1 IU, AS NEEDED
  11. POLYETHYLENE GLYCOLS [Concomitant]
     Active Substance: POLYETHYLENE GLYCOLS
     Indication: Product used for unknown indication
     Dosage: 1 DOSAGE FORMS DAILY; 13.125 G, 1-0-0-0,
  12. INSULIN GLARGINE [Concomitant]
     Active Substance: INSULIN GLARGINE
     Indication: Product used for unknown indication
     Dosage: 1 IU, AS NEEDED, PRE-FILLED SYRINGES
  13. FENTANYL [Concomitant]
     Active Substance: FENTANYL
     Indication: Product used for unknown indication
     Dosage: 0.025 MG/H, ACCORDING TO SCHEME
  14. DIGOXIN [Concomitant]
     Active Substance: DIGOXIN
     Indication: Product used for unknown indication
     Dosage: 0.25 MG, ACCORDING TO THE SCHEME
  15. CHOLECALCIFEROL [Concomitant]
     Active Substance: CHOLECALCIFEROL
     Indication: Product used for unknown indication
     Dosage: 1 DOSAGE FORMS DAILY; 1000 IE, 1-0-0-0

REACTIONS (5)
  - Acute kidney injury [Unknown]
  - Cardiac failure [Unknown]
  - Dyspnoea [Unknown]
  - Renal impairment [Unknown]
  - Anaemia [Unknown]
